FAERS Safety Report 7090088-4 (Version None)
Quarter: 2010Q4

REPORT INFORMATION
  Report Type: 
  Country: None (occurrence: None)
  Receive Date: 20101109
  Receipt Date: 20101027
  Transmission Date: 20110411
  Serious: Yes (Other)
  Sender: FDA-Public Use
  Company Number: GB-RANBAXY-2010R1-39136

PATIENT

DRUGS (4)
  1. RISPERIDONE [Suspect]
     Indication: BIPOLAR DISORDER
     Dosage: UNK
     Route: 065
  2. BECOTIDE [Concomitant]
     Indication: ASTHMA
     Dosage: UNK
     Route: 065
  3. SALBUTAMOL [Concomitant]
     Indication: ASTHMA
     Dosage: UNK
     Route: 065
  4. SERTRALINE HYDROCHLORIDE [Concomitant]
     Indication: BIPOLAR DISORDER
     Dosage: UNK
     Route: 065

REACTIONS (1)
  - FLOPPY IRIS SYNDROME [None]
